FAERS Safety Report 22263040 (Version 2)
Quarter: 2023Q2

REPORT INFORMATION
  Report Type: Spontaneous
  Country: DE (occurrence: DE)
  Receive Date: 20230428
  Receipt Date: 20230515
  Transmission Date: 20230721
  Serious: Yes (Other)
  Sender: FDA-Public Use
  Company Number: DE-JNJFOC-20230451397

PATIENT
  Age: 4 Decade
  Sex: Male

DRUGS (2)
  1. HALDOL DECANOATE [Suspect]
     Active Substance: HALOPERIDOL DECANOATE
     Indication: Product used for unknown indication
     Dosage: THE DRUG WAS GRADUALLY DISCONTINUED IN DEC-2020
     Route: 030
     Dates: start: 2017, end: 202012
  2. HALDOL [Suspect]
     Active Substance: HALOPERIDOL
     Indication: Product used for unknown indication
     Dosage: UP-TITRATION UP TO 20 MG/D IN AUG-2022
     Route: 048
     Dates: start: 202208

REACTIONS (2)
  - Diabetes insipidus [Unknown]
  - Adverse event [Unknown]

NARRATIVE: CASE EVENT DATE: 20170101
